FAERS Safety Report 4353040-5 (Version None)
Quarter: 2004Q2

REPORT INFORMATION
  Report Type: 
  Country: None (occurrence: None)
  Receive Date: 20040430
  Receipt Date: 20040106
  Transmission Date: 20050107
  Serious: No
  Sender: FDA-Public Use
  Company Number: 204074

PATIENT
  Sex: Male

DRUGS (9)
  1. XOLAIR [Suspect]
     Indication: ASTHMA
     Dosage: 150 MG, Q4W, SUBCUTANEOUS
     Route: 058
     Dates: start: 20031209, end: 20031209
  2. GLUCOPHAGE [Concomitant]
  3. FOLIC ACID [Concomitant]
  4. CPAP (RESPIRATORY TREATMENTS AND DEVICES) [Concomitant]
  5. ADVAIR (SALMETEROL XINAFOATE, FLUTICASONE PROPIONATE) [Concomitant]
  6. SINGULAIR [Concomitant]
  7. GLYBURIDE [Concomitant]
  8. LIPITOR [Concomitant]
  9. ALBUTEROL (ALBUTEROL, ALBUTEROL SULFATE) [Concomitant]

REACTIONS (5)
  - ASTHENIA [None]
  - DISORIENTATION [None]
  - DIZZINESS [None]
  - FLUSHING [None]
  - HYPERHIDROSIS [None]
